FAERS Safety Report 7408700-6 (Version None)
Quarter: 2011Q2

REPORT INFORMATION
  Report Type: 
  Country: None (occurrence: None)
  Receive Date: 20110412
  Receipt Date: 20110407
  Transmission Date: 20111010
  Serious: Yes (Other)
  Sender: FDA-Public Use
  Company Number: US-BRISTOL-MYERS SQUIBB COMPANY-15077472

PATIENT
  Age: 74 Year
  Sex: Female

DRUGS (2)
  1. ONGLYZA [Suspect]
     Indication: TYPE 2 DIABETES MELLITUS
     Route: 048
     Dates: end: 20100416
  2. ALCOHOL [Suspect]

REACTIONS (2)
  - MACROCYTOSIS [None]
  - FACE OEDEMA [None]
